FAERS Safety Report 11156824 (Version 2)
Quarter: 2015Q2

REPORT INFORMATION
  Report Type: Spontaneous
  Country: BR (occurrence: BR)
  Receive Date: 20150602
  Receipt Date: 20150617
  Transmission Date: 20150821
  Serious: Yes (Death, Hospitalization, Other)
  Sender: FDA-Public Use
  Company Number: BR-ASTRAZENECA-2015SE52257

PATIENT
  Age: 825 Month
  Sex: Male
  Weight: 60 kg

DRUGS (9)
  1. IPRATROPIUM BROMIDE. [Concomitant]
     Active Substance: IPRATROPIUM BROMIDE
     Indication: CHRONIC OBSTRUCTIVE PULMONARY DISEASE
     Route: 055
  2. HYDROCHLOROTHIAZIDE. [Suspect]
     Active Substance: HYDROCHLOROTHIAZIDE
     Indication: BLOOD PRESSURE ABNORMAL
     Dosage: NON-AZ PRODUCT
     Route: 048
     Dates: start: 201407
  3. HYDRALAZINE [Concomitant]
     Active Substance: HYDRALAZINE HYDROCHLORIDE
     Indication: BLOOD PRESSURE ABNORMAL
     Route: 048
     Dates: start: 201407
  4. SIMVASTATIN. [Concomitant]
     Active Substance: SIMVASTATIN
     Indication: BLOOD CHOLESTEROL ABNORMAL
     Route: 048
     Dates: start: 201407
  5. NIMODIPINE. [Concomitant]
     Active Substance: NIMODIPINE
     Indication: BLOOD PRESSURE ABNORMAL
     Route: 048
     Dates: start: 201407
  6. ALENIA [Suspect]
     Active Substance: BUDESONIDE\FORMOTEROL FUMARATE
     Indication: CHRONIC OBSTRUCTIVE PULMONARY DISEASE
     Dosage: SYMBICORT; 320/9 MCG; UNKNOWN
     Route: 055
     Dates: start: 201502, end: 201505
  7. ALENIA [Suspect]
     Active Substance: BUDESONIDE\FORMOTEROL FUMARATE
     Indication: CHRONIC OBSTRUCTIVE PULMONARY DISEASE
     Dosage: 12/400 MCG; UNKNOWN
     Route: 055
     Dates: end: 201502
  8. CLOPIDOGREL [Concomitant]
     Active Substance: CLOPIDOGREL BISULFATE
     Indication: ANTICOAGULANT THERAPY
     Route: 048
     Dates: start: 201407
  9. LOSARTAN [Concomitant]
     Active Substance: LOSARTAN
     Indication: BLOOD PRESSURE ABNORMAL
     Route: 048
     Dates: start: 201407

REACTIONS (8)
  - Ischaemic stroke [Recovered/Resolved with Sequelae]
  - Acute myocardial infarction [Fatal]
  - Pericardial effusion [Fatal]
  - Throat irritation [Not Recovered/Not Resolved]
  - Haemorrhagic stroke [Recovered/Resolved with Sequelae]
  - Haemoptysis [Not Recovered/Not Resolved]
  - Aortic aneurysm [Fatal]
  - Motor dysfunction [Not Recovered/Not Resolved]

NARRATIVE: CASE EVENT DATE: 201407
